FAERS Safety Report 8590205-0 (Version None)
Quarter: 2012Q3

REPORT INFORMATION
  Report Type: 
  Country: None (occurrence: None)
  Receive Date: 20120813
  Receipt Date: 19930510
  Transmission Date: 20120928
  Serious: Yes (Other)
  Sender: FDA-Public Use
  Company Number: US-ROCHE-1100500

PATIENT
  Age: 63 Year
  Sex: Female

DRUGS (4)
  1. ACTIVASE [Suspect]
     Indication: ACUTE MYOCARDIAL INFARCTION
  2. MORPHINE SULFATE [Concomitant]
  3. HUMULIN INSULIN N [Concomitant]
     Dosage: 20 UNITS
     Route: 058
  4. HEPARIN [Concomitant]

REACTIONS (2)
  - NAUSEA [None]
  - CHEST PAIN [None]
